FAERS Safety Report 14670674 (Version 1)
Quarter: 2018Q1

REPORT INFORMATION
  Report Type: Report from Study
  Country: ES (occurrence: ES)
  Receive Date: 20180322
  Receipt Date: 20180322
  Transmission Date: 20180509
  Serious: Yes (Hospitalization)
  Sender: FDA-Public Use
  Company Number: ES-TEVA-2018-ES-870219

PATIENT
  Age: 49 Year
  Sex: Male

DRUGS (4)
  1. TARGIN 10 MG/5 MG [Interacting]
     Active Substance: NALOXONE HYDROCHLORIDE\OXYCODONE HYDROCHLORIDE
     Indication: NEURALGIA
     Route: 048
  2. SINOGAN 25 MG/ML SOLUCION INYECTABLE, 10 AMPOLLAS DE 1 ML [Interacting]
     Active Substance: LEVOMEPROMAZINE HYDROCHLORIDE
     Indication: ANXIETY
     Route: 030
  3. DULOXETINA (7421A) [Suspect]
     Active Substance: DULOXETINE
     Indication: NEURALGIA
     Route: 048
  4. LORAZEPAM (1864A) [Concomitant]
     Indication: INSOMNIA
     Route: 048

REACTIONS (3)
  - Dysphoria [Recovered/Resolved]
  - Drug interaction [Unknown]
  - Hallucination [Recovered/Resolved]
